FAERS Safety Report 20334830 (Version 2)
Quarter: 2022Q1

REPORT INFORMATION
  Report Type: Spontaneous
  Country: US (occurrence: US)
  Receive Date: 20220114
  Receipt Date: 20220117
  Transmission Date: 20220424
  Serious: Yes (Hospitalization)
  Sender: FDA-Public Use
  Company Number: US-CELLTRION INC.-2022US000294

PATIENT

DRUGS (6)
  1. RITUXIMAB [Suspect]
     Active Substance: RITUXIMAB
     Indication: Mantle cell lymphoma
     Dosage: MAINTENANCE THERAPY
  2. RITUXIMAB [Suspect]
     Active Substance: RITUXIMAB
     Dosage: THREE CYCLES OF R-CHOP
  3. RITUXIMAB [Suspect]
     Active Substance: RITUXIMAB
     Dosage: THREE CYCLES OF R-DHAP
  4. RITUXIMAB [Suspect]
     Active Substance: RITUXIMAB
     Dosage: EVERY TWO MONTHS
  5. CYCLOPHOSPHAMIDE\DOXORUBICIN\PREDNISONE\VINCRISTINE [Suspect]
     Active Substance: CYCLOPHOSPHAMIDE\DOXORUBICIN\PREDNISONE\VINCRISTINE
     Indication: Mantle cell lymphoma
     Dosage: THREE CYCLES OF R-CHOP
  6. CISPLATIN\CYTARABINE\DEXAMETHASONE [Suspect]
     Active Substance: CISPLATIN\CYTARABINE\DEXAMETHASONE
     Indication: Mantle cell lymphoma
     Dosage: THREE CYCLES OF R-DHAP

REACTIONS (4)
  - Deafness bilateral [Recovering/Resolving]
  - Myalgia [Recovering/Resolving]
  - Hepatitis A [Recovering/Resolving]
  - Off label use [Unknown]
